FAERS Safety Report 9657820 (Version 1)
Quarter: 2013Q4

REPORT INFORMATION
  Report Type: Spontaneous
  Country: US (occurrence: US)
  Receive Date: 20131030
  Receipt Date: 20131030
  Transmission Date: 20140711
  Serious: No
  Sender: FDA-Public Use
  Company Number: US-PFIZER INC-2013307816

PATIENT
  Age: 62 Year
  Sex: Female

DRUGS (7)
  1. LYRICA [Suspect]
     Dosage: 300 MG, 3X/DAY
     Route: 048
  2. NEURONTIN [Suspect]
     Dosage: 1200 MG, 3X/DAY
     Route: 048
  3. ATENOLOL [Concomitant]
     Dosage: UNK
  4. ENALAPRIL [Concomitant]
     Dosage: UNK
  5. WELLBUTRIN [Concomitant]
     Dosage: UNK
  6. METHADONE [Concomitant]
     Dosage: UNK
  7. PRIVIGEN [Concomitant]
     Dosage: UNK

REACTIONS (2)
  - Overdose [Unknown]
  - Malaise [Unknown]
